FAERS Safety Report 6685861-8 (Version None)
Quarter: 2010Q2

REPORT INFORMATION
  Report Type: 
  Country: None (occurrence: None)
  Receive Date: 20100419
  Receipt Date: 20100405
  Transmission Date: 20101027
  Serious: No
  Sender: FDA-Public Use
  Company Number: US-B.I. PHARMACEUTICALS,INC./RIDGEFIELD-2007-BP-21437BP

PATIENT
  Age: 87 Year
  Sex: Male

DRUGS (11)
  1. FLOMAX [Suspect]
     Indication: DYSURIA
     Dosage: 0.4 MG
     Route: 048
     Dates: start: 20070601
  2. FLOMAX [Suspect]
     Dosage: 0.8 MG
     Route: 048
  3. PLAVIX [Concomitant]
     Indication: CORONARY ARTERY BYPASS
  4. ASPIRIN [Concomitant]
     Indication: CORONARY ARTERY BYPASS
     Dosage: 81 MG
  5. FOSAMAX [Concomitant]
     Indication: OSTEOPOROSIS
  6. FUROSEMIDE [Concomitant]
     Indication: OEDEMA
  7. ZAROXOLYN [Concomitant]
     Indication: OEDEMA
  8. POTASSIUM [Concomitant]
     Indication: OEDEMA
  9. SIMVASTATIN [Concomitant]
     Indication: BLOOD CHOLESTEROL INCREASED
  10. NIASPAN [Concomitant]
     Indication: BLOOD CHOLESTEROL INCREASED
  11. IMDUR [Concomitant]
     Indication: CORONARY ARTERY BYPASS

REACTIONS (5)
  - DRUG INEFFECTIVE [None]
  - MIDDLE INSOMNIA [None]
  - NOCTURIA [None]
  - URINE FLOW DECREASED [None]
  - URINE OUTPUT DECREASED [None]
